FAERS Safety Report 9025372 (Version 1)
Quarter: 2012Q4

REPORT INFORMATION
  Report Type: 
  Country: MX (occurrence: MX)
  Receive Date: 20121211
  Receipt Date: 20121211
  Transmission Date: 20130627
  Serious: Yes (Death)
  Sender: FDA-Public Use
  Company Number: PHHY2012MX113768

PATIENT
  Age: 73 Year
  Sex: Male

DRUGS (2)
  1. CO-DIOVAN [Suspect]
     Indication: HYPERTENSION
     Dosage: 1 DF (320/25mg) daily
     Route: 048
     Dates: start: 201012, end: 201211
  2. NUMENCIAL                               /MEX/ [Concomitant]
     Indication: DEPRESSION
     Dosage: 1 DF, daily
     Dates: start: 201205, end: 201211

REACTIONS (2)
  - Aortic disorder [Fatal]
  - Depressed mood [Unknown]
